FAERS Safety Report 10442717 (Version 1)
Quarter: 2014Q3

REPORT INFORMATION
  Report Type: Spontaneous
  Country: AU (occurrence: None)
  Receive Date: 20140908
  Receipt Date: 20140908
  Transmission Date: 20150326
  Serious: Yes (Other)
  Sender: FDA-Public Use
  Company Number: 2014AP004452

PATIENT
  Age: 56 Year
  Sex: Male

DRUGS (7)
  1. RANITIDINE (RANITIDINE) UNKNOWN [Suspect]
     Active Substance: RANITIDINE HYDROCHLORIDE
     Indication: GASTROOESOPHAGEAL REFLUX DISEASE
  2. VERAPAMIL [Concomitant]
     Active Substance: VERAPAMIL HYDROCHLORIDE
  3. ALLOPURINOL. [Concomitant]
     Active Substance: ALLOPURINOL
  4. PERINDOPRIL [Concomitant]
     Active Substance: PERINDOPRIL
  5. MOCLOBEMIDE [Concomitant]
     Active Substance: MOCLOBEMIDE
  6. FAMOTIDINE (FAMOTIDINE) [Suspect]
     Active Substance: FAMOTIDINE
     Indication: GASTROOESOPHAGEAL REFLUX DISEASE
     Dosage: 20 MG NOCTE
  7. OMEPRAZOLE (OMEPRAZOLE) UNKNOWN [Suspect]
     Active Substance: OMEPRAZOLE
     Indication: GASTROOESOPHAGEAL REFLUX DISEASE
     Dosage: 20 MG MANE

REACTIONS (2)
  - Normochromic normocytic anaemia [None]
  - Tubulointerstitial nephritis [None]
